FAERS Safety Report 14108709 (Version 1)
Quarter: 2017Q4

REPORT INFORMATION
  Report Type: Not Available
  Country: US (occurrence: US)
  Receive Date: 20171019
  Receipt Date: 20171019
  Transmission Date: 20180321
  Serious: No
  Sender: FDA-Public Use
  Company Number: US-NEUROCRINE BIOSCIENCES INC.-2017NBI00485

PATIENT
  Age: 71 Year
  Sex: Male
  Weight: 79.9 kg

DRUGS (18)
  1. ASPIRIN. [Concomitant]
     Active Substance: ASPIRIN
  2. SINGULAIR [Concomitant]
     Active Substance: MONTELUKAST SODIUM
  3. SPIRIVA [Concomitant]
     Active Substance: TIOTROPIUM BROMIDE MONOHYDRATE
  4. ADVAIR HFA [Concomitant]
     Active Substance: FLUTICASONE PROPIONATE\SALMETEROL XINAFOATE
  5. LOVAZA [Concomitant]
     Active Substance: OMEGA-3-ACID ETHYL ESTERS
  6. VITAMIN D [Concomitant]
     Active Substance: CHOLECALCIFEROL
  7. INGREZZA [Suspect]
     Active Substance: VALBENAZINE
     Indication: TARDIVE DYSKINESIA
     Route: 048
     Dates: start: 20170628, end: 20170704
  8. INGREZZA [Suspect]
     Active Substance: VALBENAZINE
     Route: 048
     Dates: start: 20170705, end: 201708
  9. LOPRESSOR ER [Concomitant]
  10. ZETIA [Concomitant]
     Active Substance: EZETIMIBE
  11. PAXIL [Concomitant]
     Active Substance: PAROXETINE HYDROCHLORIDE
  12. NEXIUM [Concomitant]
     Active Substance: ESOMEPRAZOLE MAGNESIUM
  13. PULMICORT TURBUHALER [Concomitant]
     Active Substance: BUDESONIDE
  14. DIGOXIN. [Concomitant]
     Active Substance: DIGOXIN
     Dosage: AT NIGHT
  15. FISH OIL [Concomitant]
     Active Substance: FISH OIL
  16. PROVENTIL [Concomitant]
     Active Substance: ALBUTEROL
  17. ENTRESTO [Concomitant]
     Active Substance: SACUBITRIL\VALSARTAN
     Dosage: 97/103
  18. XANAX [Concomitant]
     Active Substance: ALPRAZOLAM

REACTIONS (3)
  - Somnolence [Recovered/Resolved]
  - Fatigue [Unknown]
  - Drug ineffective [Unknown]

NARRATIVE: CASE EVENT DATE: 2017
